FAERS Safety Report 24443867 (Version 2)
Quarter: 2024Q4

REPORT INFORMATION
  Report Type: Report from Study
  Country: US (occurrence: US)
  Receive Date: 20241016
  Receipt Date: 20241017
  Transmission Date: 20250114
  Serious: No
  Sender: ROCHE
  Company Number: US-ROCHE-2566315

PATIENT
  Age: 71 Year
  Sex: Male
  Weight: 84.0 kg

DRUGS (7)
  1. RITUXAN [Suspect]
     Active Substance: RITUXIMAB
     Indication: Dermatomyositis
     Dosage: INFUSE 1000 MG INTRAVENOUSLY DAY 1 AND DAY 15 EVERY 6 MONTH(S), MOST RECENT RX FROM /JUN/2020
     Route: 041
  2. RITUXAN [Suspect]
     Active Substance: RITUXIMAB
     Dosage: 1000MG IV Q 6 MONTHS AT WEEK 1 AND WEEK 2 AND EVERY 6 MONTHS
     Route: 041
  3. BENADRYL [Concomitant]
     Active Substance: DIPHENHYDRAMINE HYDROCHLORIDE
     Route: 042
  4. TYLENOL [Concomitant]
     Active Substance: ACETAMINOPHEN
     Route: 048
  5. SOLU-CORTEF [Concomitant]
     Active Substance: HYDROCORTISONE SODIUM SUCCINATE
     Route: 042
  6. FOLIC ACID [Concomitant]
     Active Substance: FOLIC ACID
     Route: 048
  7. METHOTREXATE [Concomitant]
     Active Substance: METHOTREXATE
     Route: 058

REACTIONS (3)
  - Off label use [Unknown]
  - No adverse event [Unknown]
  - Product dispensing error [Unknown]
